FAERS Safety Report 5207526-1 (Version None)
Quarter: 2007Q1

REPORT INFORMATION
  Report Type: 
  Country: None (occurrence: None)
  Receive Date: 20070112
  Receipt Date: 20070109
  Transmission Date: 20070707
  Serious: Yes (Hospitalization, Other)
  Sender: FDA-Public Use
  Company Number: US-BOEHRINGER INGELHEIM PHARMACEUTICALS, INC.-2006-BP-09549BP

PATIENT
  Sex: Male
  Weight: 68 kg

DRUGS (12)
  1. SPIRIVA [Suspect]
     Indication: CHRONIC OBSTRUCTIVE PULMONARY DISEASE
     Route: 055
     Dates: start: 20040706
  2. SPIRIVA [Suspect]
     Indication: EMPHYSEMA
  3. DUONEB [Concomitant]
     Route: 055
  4. ADVAIR DISKUS 100/50 [Concomitant]
     Indication: CHRONIC OBSTRUCTIVE PULMONARY DISEASE
  5. HYDROCHLOROTHIAZIDE [Concomitant]
     Indication: HYPERTENSION
  6. XANAX [Concomitant]
     Indication: ANXIETY
  7. ALBUTEROL RESCUE INHALER [Concomitant]
     Route: 055
  8. OXYGEN [Concomitant]
  9. FLOMAX [Concomitant]
  10. PREDNISONE TAB [Concomitant]
  11. LORAZEPAM [Concomitant]
  12. LEVAQUIN [Concomitant]

REACTIONS (13)
  - ACARODERMATITIS [None]
  - ACCIDENTAL EXPOSURE [None]
  - ACUTE RESPIRATORY FAILURE [None]
  - CHRONIC OBSTRUCTIVE PULMONARY DISEASE [None]
  - CONSTIPATION [None]
  - DRUG INEFFECTIVE [None]
  - DYSPHONIA [None]
  - GUILLAIN-BARRE SYNDROME [None]
  - HYPOAESTHESIA [None]
  - PNEUMONIA [None]
  - PROSTATE CANCER [None]
  - PRURITUS [None]
  - UPPER RESPIRATORY TRACT INFECTION [None]
